FAERS Safety Report 12554804 (Version 2)
Quarter: 2016Q3

REPORT INFORMATION
  Report Type: Report from Study
  Country: DE (occurrence: JP)
  Receive Date: 20160713
  Receipt Date: 20160714
  Transmission Date: 20161109
  Serious: Yes (Death)
  Sender: FDA-Public Use
  Company Number: DE-ACTELION-A-US2016-139285

PATIENT
  Age: 34 Day

DRUGS (6)
  1. REVATIO [Concomitant]
     Active Substance: SILDENAFIL CITRATE
  2. VENTAVIS [Suspect]
     Active Substance: ILOPROST
     Indication: PERSISTENT FOETAL CIRCULATION
     Dosage: 80 MCG, QD
     Route: 055
     Dates: start: 20160609, end: 20160612
  3. VENTAVIS [Suspect]
     Active Substance: ILOPROST
     Dosage: 120 MCG, QD
     Route: 055
     Dates: start: 20160613, end: 20160616
  4. TRACLEER [Concomitant]
     Active Substance: BOSENTAN
     Indication: PERSISTENT FOETAL CIRCULATION
     Route: 048
  5. EPOPROSTENOL. [Concomitant]
     Active Substance: EPOPROSTENOL
  6. BOSMIN [Concomitant]
     Active Substance: EPINEPHRINE

REACTIONS (2)
  - Pulmonary hypertension [Fatal]
  - Drug administered to patient of inappropriate age [Unknown]
